FAERS Safety Report 8358294-6 (Version None)
Quarter: 2012Q2

REPORT INFORMATION
  Report Type: 
  Country: None (occurrence: None)
  Receive Date: 20120514
  Receipt Date: 20120510
  Transmission Date: 20120825
  Serious: Yes (Hospitalization)
  Sender: FDA-Public Use
  Company Number: US-AMGEN-USANI2011051832

PATIENT
  Age: 49 Year
  Sex: Female
  Weight: 75.3 kg

DRUGS (4)
  1. CLOBETASOL PROPIONATE [Concomitant]
     Dosage: UNK
     Route: 061
  2. BENICAR [Concomitant]
     Dosage: UNK
  3. ETANERCEPT [Suspect]
     Indication: PSORIASIS
     Dosage: 50 MG, QWK
     Route: 058
     Dates: start: 20070219, end: 20110809
  4. DOVONEX [Concomitant]
     Dosage: 60 G, UNK

REACTIONS (1)
  - THYROID CANCER [None]
